FAERS Safety Report 11025966 (Version 1)
Quarter: 2015Q2

REPORT INFORMATION
  Report Type: Spontaneous
  Country: US (occurrence: None)
  Receive Date: 20150413
  Receipt Date: 20150413
  Transmission Date: 20150821
  Serious: Yes (Hospitalization)
  Sender: FDA-Public Use
  Company Number: None

PATIENT
  Age: 56 Year
  Sex: Female
  Weight: 52.3 kg

DRUGS (2)
  1. CARBOPLATIN. [Suspect]
     Active Substance: CARBOPLATIN
     Indication: OVARIAN CANCER
     Dosage: Q21 DAYS
     Route: 042
     Dates: start: 20141001, end: 20150116
  2. TRICIRIBINE PHOSPHATE [Suspect]
     Active Substance: TRICIRIBINE PHOSPHATE
     Indication: OVARIAN CANCER
     Dosage: ONCE WEEKLY
     Route: 042
     Dates: start: 20141001, end: 20150116

REACTIONS (3)
  - Pleural effusion [None]
  - Pelvic mass [None]
  - Fistula [None]

NARRATIVE: CASE EVENT DATE: 20150216
